FAERS Safety Report 9398327 (Version 1)
Quarter: 2013Q3

REPORT INFORMATION
  Report Type: Spontaneous
  Country: US (occurrence: US)
  Receive Date: 20130712
  Receipt Date: 20130712
  Transmission Date: 20140515
  Serious: No
  Sender: FDA-Public Use
  Company Number: US-GLAXOSMITHKLINE-A1005078A

PATIENT
  Age: 72 Year
  Sex: Female

DRUGS (9)
  1. FLOVENT [Suspect]
     Indication: CHRONIC OBSTRUCTIVE PULMONARY DISEASE
     Dosage: 1PUFF TWICE PER DAY
     Route: 055
     Dates: start: 1998
  2. COUMADIN [Concomitant]
  3. BENICAR [Concomitant]
  4. TIKOSYN [Concomitant]
  5. ATROVENT [Concomitant]
  6. XANAX [Concomitant]
  7. KLONOPIN [Concomitant]
  8. ZYRTEC [Concomitant]
  9. VITAMINS [Concomitant]

REACTIONS (5)
  - Sinus disorder [Unknown]
  - Rhinorrhoea [Unknown]
  - Headache [Unknown]
  - Cough [Unknown]
  - Upper-airway cough syndrome [Unknown]
